FAERS Safety Report 24568705 (Version 2)
Quarter: 2024Q4

REPORT INFORMATION
  Report Type: Report from Study
  Country: CN (occurrence: CN)
  Receive Date: 20241031
  Receipt Date: 20241119
  Transmission Date: 20250115
  Serious: Yes (Hospitalization, Other)
  Sender: ROCHE
  Company Number: CN-ROCHE-10000115382

PATIENT
  Age: 64 Year
  Sex: Female

DRUGS (1)
  1. GLOFITAMAB [Suspect]
     Active Substance: GLOFITAMAB
     Indication: Diffuse large B-cell lymphoma
     Route: 042
     Dates: start: 20240730

REACTIONS (2)
  - Coronary artery occlusion [Unknown]
  - Lung disorder [Unknown]
